FAERS Safety Report 9162934 (Version 2)
Quarter: 2013Q3

REPORT INFORMATION
  Report Type: Spontaneous
  Country: FR (occurrence: None)
  Receive Date: 20130214
  Receipt Date: 20130710
  Transmission Date: 20140515
  Serious: Yes (Hospitalization)
  Sender: FDA-Public Use
  Company Number: 2013034652

PATIENT
  Age: 28 Year
  Sex: Male

DRUGS (5)
  1. PRIVIGEN [Suspect]
     Indication: PROPHYLAXIS AGAINST TRANSPLANT REJECTION
     Dosage: 60 G TOTAL
     Route: 042
     Dates: start: 20121231, end: 20130101
  2. MABTHERA [Suspect]
     Dosage: 1 G TOTAL
     Dates: start: 20121217, end: 20121218
  3. CYMEVAN [Concomitant]
  4. TIENAM [Concomitant]
  5. VANCOMYCIN [Concomitant]

REACTIONS (9)
  - Shock haemorrhagic [None]
  - Dermatitis bullous [None]
  - Pneumonia klebsiella [None]
  - Escherichia infection [None]
  - Staphylococcal infection [None]
  - Enterococcal infection [None]
  - Cardiac arrest [None]
  - Septic shock [None]
  - Transplant rejection [None]
